FAERS Safety Report 7402412-0 (Version None)
Quarter: 2011Q2

REPORT INFORMATION
  Report Type: 
  Country: None (occurrence: None)
  Receive Date: 20110408
  Receipt Date: 20110329
  Transmission Date: 20111010
  Serious: Yes (Hospitalization)
  Sender: FDA-Public Use
  Company Number: GR-BRISTOL-MYERS SQUIBB COMPANY-15568165

PATIENT
  Age: 42 Year
  Sex: Female
  Weight: 78 kg

DRUGS (6)
  1. CISPLATIN [Suspect]
     Indication: NON-SMALL CELL LUNG CANCER
     Route: 042
     Dates: start: 20100211, end: 20100527
  2. PEMETREXED DISODIUM [Suspect]
     Indication: NON-SMALL CELL LUNG CANCER
     Dosage: 500 MG/M2 11FEB2010-27MAY10.106 DAYS. 18JUN10-UNK INT ON:14FEB11.RESUMED ON 21FEB2011.
     Route: 042
     Dates: start: 20100211
  3. FOLIC ACID [Concomitant]
     Indication: PROPHYLAXIS
     Dates: start: 20100205
  4. DEXAMETHASONE [Concomitant]
     Indication: PROPHYLAXIS
     Dates: start: 20100210
  5. CETUXIMAB [Suspect]
     Indication: NON-SMALL CELL LUNG CANCER
     Dosage: DAY1CYCLE1 11FEB10-UK 400MG/M2 UK-11JUN10.250 MG/M2 1/W 18JUN10-UNK 250MG/M2 1/W INT ON:14FEB11
     Route: 042
  6. VITAMIN B-12 [Concomitant]
     Indication: PROPHYLAXIS
     Dates: start: 20100205

REACTIONS (1)
  - UTERINE HAEMORRHAGE [None]
